FAERS Safety Report 6827752-5 (Version None)
Quarter: 2010Q3

REPORT INFORMATION
  Report Type: 
  Country: None (occurrence: None)
  Receive Date: 20100709
  Receipt Date: 20070125
  Transmission Date: 20110219
  Serious: No
  Sender: FDA-Public Use
  Company Number: US-PFIZER INC-2007008342

PATIENT
  Sex: Male
  Weight: 70.76 kg

DRUGS (14)
  1. CHANTIX [Suspect]
     Indication: SMOKING CESSATION THERAPY
  2. SPIRIVA [Concomitant]
  3. ALBUTEROL [Concomitant]
     Route: 055
  4. ALBUTEROL [Concomitant]
     Route: 050
  5. FLUTICASONE PROPIONATE [Concomitant]
     Route: 055
  6. PLAVIX [Concomitant]
  7. ACETYLSALICYLIC ACID [Concomitant]
  8. ENALAPRIL MALEATE [Concomitant]
  9. METOPROLOL [Concomitant]
  10. ZETIA [Concomitant]
  11. EFFEXOR XR [Concomitant]
  12. LIPITOR [Concomitant]
  13. TYLENOL [Concomitant]
  14. NITROGLYCERIN [Concomitant]
     Indication: CHEST PAIN

REACTIONS (3)
  - HEADACHE [None]
  - HYPERSOMNIA [None]
  - VOMITING [None]
